FAERS Safety Report 25950938 (Version 2)
Quarter: 2025Q4

REPORT INFORMATION
  Report Type: Report from Study
  Country: US (occurrence: US)
  Receive Date: 20251023
  Receipt Date: 20251107
  Transmission Date: 20260117
  Serious: Yes (Hospitalization)
  Sender: BOEHRINGER INGELHEIM
  Company Number: US-BoehringerIngelheim-2025-BI-100880

PATIENT
  Age: 71 Year
  Sex: Male

DRUGS (3)
  1. OFEV [Suspect]
     Active Substance: NINTEDANIB
     Indication: Idiopathic pulmonary fibrosis
     Dates: start: 20251001, end: 20251002
  2. OFEV [Suspect]
     Active Substance: NINTEDANIB
     Dates: start: 202509, end: 202509
  3. OFEV [Suspect]
     Active Substance: NINTEDANIB

REACTIONS (9)
  - Diarrhoea [Recovering/Resolving]
  - Nausea [Recovering/Resolving]
  - Illness [Unknown]
  - Dyspnoea [Unknown]
  - Insomnia [Unknown]
  - Constipation [Not Recovered/Not Resolved]
  - Nausea [Recovered/Resolved]
  - Diarrhoea [Recovered/Resolved]
  - Insomnia [Recovered/Resolved]

NARRATIVE: CASE EVENT DATE: 20251001
